FAERS Safety Report 5050096-1 (Version None)
Quarter: 2006Q3

REPORT INFORMATION
  Report Type: 
  Country: None (occurrence: None)
  Receive Date: 20060713
  Receipt Date: 20060705
  Transmission Date: 20061208
  Serious: Yes (Other)
  Sender: FDA-Public Use
  Company Number: GB-AVENTIS-200616905GDDC

PATIENT
  Age: 9 Year
  Sex: Male

DRUGS (1)
  1. DESMOPRESSIN [Suspect]
     Indication: ENURESIS
     Route: 048
     Dates: end: 20060522

REACTIONS (1)
  - HYPERTENSION [None]
